FAERS Safety Report 4634460-8 (Version None)
Quarter: 2005Q2

REPORT INFORMATION
  Report Type: 
  Country: None (occurrence: None)
  Receive Date: 20050412
  Receipt Date: 20050329
  Transmission Date: 20051028
  Serious: Yes (Hospitalization)
  Sender: FDA-Public Use
  Company Number: 2005BI001101

PATIENT
  Age: 62 Year
  Sex: Female

DRUGS (11)
  1. AMEVIVE [Suspect]
     Indication: PSORIASIS
     Dosage: SEE IMAGE
     Route: 030
     Dates: start: 20030901, end: 20030101
  2. AMEVIVE [Suspect]
     Indication: PSORIASIS
     Dosage: SEE IMAGE
     Route: 030
     Dates: start: 20040101, end: 20040101
  3. TRAZODONE HCL [Concomitant]
  4. VICODIN [Concomitant]
  5. NICODERM [Concomitant]
  6. FENTANYL CITRATE [Concomitant]
  7. AMBIEN [Concomitant]
  8. LACTULOSE [Concomitant]
  9. LASIX [Concomitant]
  10. K-DUR 10 [Concomitant]
  11. XANAX [Concomitant]

REACTIONS (1)
  - BRONCHIAL CYST [None]
